FAERS Safety Report 17193579 (Version 2)
Quarter: 2019Q4

REPORT INFORMATION
  Report Type: Spontaneous
  Country: JP (occurrence: JP)
  Receive Date: 20191223
  Receipt Date: 20191227
  Transmission Date: 20200122
  Serious: Yes (Hospitalization)
  Sender: FDA-Public Use
  Company Number: JP-ELI_LILLY_AND_COMPANY-JP201912008854AA

PATIENT
  Age: 63 Year
  Sex: Male

DRUGS (14)
  1. OLUMIANT [Suspect]
     Active Substance: BARICITINIB
     Indication: RHEUMATOID ARTHRITIS
     Dosage: 4 MG, DAILY
     Route: 048
     Dates: start: 201908, end: 20191202
  2. CLOPIDOGREL [Concomitant]
     Active Substance: CLOPIDOGREL BISULFATE
  3. TORASEMIDE [Concomitant]
     Active Substance: TORSEMIDE
  4. CELECOX [Concomitant]
     Active Substance: CELECOXIB
  5. ERYTHROCIN [ERYTHROMYCIN STEARATE] [Concomitant]
  6. ENALAPRIL MALEATE. [Concomitant]
     Active Substance: ENALAPRIL MALEATE
  7. RABEPRAZOLE NA [Concomitant]
     Active Substance: RABEPRAZOLE SODIUM
  8. ONBREZ [Concomitant]
     Active Substance: INDACATEROL
  9. METOLATE [Concomitant]
     Active Substance: METHOTREXATE
  10. FOLIAMIN [Concomitant]
     Active Substance: FOLIC ACID
  11. ONETRAM [Concomitant]
     Active Substance: TRAMADOL HYDROCHLORIDE
  12. BAYASPIRIN [Concomitant]
     Active Substance: ASPIRIN
  13. CARBOCISTEINE [Concomitant]
     Active Substance: CARBOCYSTEINE
  14. ROSUVASTATIN. [Concomitant]
     Active Substance: ROSUVASTATIN

REACTIONS (2)
  - Small cell lung cancer [Not Recovered/Not Resolved]
  - Metastases to lung [Not Recovered/Not Resolved]

NARRATIVE: CASE EVENT DATE: 20191111
